FAERS Safety Report 4760933-3 (Version None)
Quarter: 2005Q3

REPORT INFORMATION
  Report Type: 
  Country: None (occurrence: None)
  Receive Date: 20050901
  Receipt Date: 20050822
  Transmission Date: 20060218
  Serious: Yes (Hospitalization)
  Sender: FDA-Public Use
  Company Number: 2005US001165

PATIENT
  Age: 44 Year
  Sex: Male

DRUGS (11)
  1. PROGRAF [Suspect]
     Indication: PROPHYLAXIS AGAINST TRANSPLANT REJECTION
     Dosage: 9 MG, BID, ORAL
     Route: 048
     Dates: start: 20050420
  2. MYCOPHENOLATE MOFETIL (MYCOPHENOLATE MOFETIL) [Suspect]
     Indication: PROPHYLAXIS AGAINST TRANSPLANT REJECTION
     Dosage: 1000.00 MG, BID, ORAL
     Route: 048
     Dates: start: 20050420
  3. PREDNISONE [Suspect]
     Indication: PROPHYLAXIS AGAINST TRANSPLANT REJECTION
     Dosage: 7.50 MG, UID/QD, ORAL
     Route: 048
     Dates: start: 20050420
  4. ASPIRIN [Concomitant]
  5. CALCIUM (CALCIUM) [Concomitant]
  6. MYCELEX [Concomitant]
  7. SEPTRA [Concomitant]
  8. VALGANCICLOVIR (VALGANCICLOVIR) [Concomitant]
  9. MINOXIDIL [Concomitant]
  10. LOPRESSOR [Concomitant]
  11. NEXIUM     /UNK/ (ESOMEPRAZOLE) [Concomitant]

REACTIONS (1)
  - CHOLECYSTITIS [None]
